FAERS Safety Report 6495512-3 (Version None)
Quarter: 2009Q4

REPORT INFORMATION
  Report Type: 
  Country: None (occurrence: None)
  Receive Date: 20091214
  Receipt Date: 20090702
  Transmission Date: 20100525
  Serious: No
  Sender: FDA-Public Use
  Company Number: US-BRISTOL-MYERS SQUIBB COMPANY-14688063

PATIENT
  Age: 36 Year
  Sex: Female
  Weight: 47 kg

DRUGS (3)
  1. ABILIFY [Suspect]
     Indication: BIPOLAR DISORDER
     Dosage: QHS
     Dates: start: 20090626, end: 20090101
  2. XANAX [Concomitant]
  3. ZYRTEC [Concomitant]

REACTIONS (2)
  - DIZZINESS [None]
  - NAUSEA [None]
